FAERS Safety Report 15096500 (Version 1)
Quarter: 2018Q2

REPORT INFORMATION
  Report Type: Spontaneous
  Country: US (occurrence: US)
  Receive Date: 20180610
  Receipt Date: 20180610
  Transmission Date: 20180711
  Serious: Yes (Other)
  Sender: FDA-Public Use
  Company Number: None

PATIENT
  Age: 5 Year
  Sex: Male
  Weight: 20.25 kg

DRUGS (1)
  1. METHYLPHENIDATE XR (GENERIC CONCERTA) 18 MG [Suspect]
     Active Substance: METHYLPHENIDATE
     Indication: ATTENTION DEFICIT/HYPERACTIVITY DISORDER
     Dosage: ?          QUANTITY:1 TABLET(S);?
     Route: 048
     Dates: start: 20180504, end: 20180610

REACTIONS (5)
  - Anger [None]
  - Product substitution issue [None]
  - Panic attack [None]
  - Irritability [None]
  - Affective disorder [None]

NARRATIVE: CASE EVENT DATE: 20180505
